FAERS Safety Report 8037839-X (Version None)
Quarter: 2012Q1

REPORT INFORMATION
  Report Type: 
  Country: None (occurrence: None)
  Receive Date: 20120105
  Receipt Date: 20111230
  Transmission Date: 20120608
  Serious: Yes (Disabling, Other)
  Sender: FDA-Public Use
  Company Number: ACO_28488_2011

PATIENT
  Age: 54 Year
  Sex: Female
  Weight: 53.5 kg

DRUGS (4)
  1. GABAPENTIN [Concomitant]
  2. MELATONIN (MELATONIN) [Concomitant]
  3. AMPYRA [Suspect]
     Indication: MULTIPLE SCLEROSIS
     Dosage: 10 MG, BID, ORAL
     Route: 048
     Dates: start: 20111214, end: 20111214
  4. CALCIUM MAGNESIUM (CALCIUM, MAGNESIUM) [Concomitant]

REACTIONS (3)
  - MUSCULAR WEAKNESS [None]
  - SENSATION OF HEAVINESS [None]
  - HYPOKINESIA [None]
